FAERS Safety Report 5411559-X (Version None)
Quarter: 2007Q3

REPORT INFORMATION
  Report Type: 
  Country: None (occurrence: None)
  Receive Date: 20070810
  Receipt Date: 20070731
  Transmission Date: 20080115
  Serious: Yes (Other)
  Sender: FDA-Public Use
  Company Number: US-PFIZER INC-2007064641

PATIENT
  Sex: Female
  Weight: 61.363 kg

DRUGS (4)
  1. CHANTIX [Suspect]
     Indication: SMOKING CESSATION THERAPY
     Dosage: TEXT:EVERYDAY
     Dates: start: 20070701, end: 20070730
  2. ATIVAN [Concomitant]
     Indication: ANXIETY
  3. ALL OTHER THERAPEUTIC PRODUCTS [Concomitant]
     Indication: ANXIETY
  4. ZOCOR [Concomitant]

REACTIONS (5)
  - ANXIETY [None]
  - DEPRESSION [None]
  - HYPERHIDROSIS [None]
  - SUICIDAL IDEATION [None]
  - THINKING ABNORMAL [None]
